FAERS Safety Report 16450938 (Version 4)
Quarter: 2019Q3

REPORT INFORMATION
  Report Type: Spontaneous
  Country: ES (occurrence: ES)
  Receive Date: 20190619
  Receipt Date: 20190717
  Transmission Date: 20191004
  Serious: Yes (Hospitalization)
  Sender: FDA-Public Use
  Company Number: PHHY2019ES140870

PATIENT
  Age: 50 Year
  Sex: Male

DRUGS (3)
  1. ADALIMUMAB [Suspect]
     Active Substance: ADALIMUMAB
     Dosage: 80 MG, QW2
     Route: 058
  2. ADALIMUMAB [Suspect]
     Active Substance: ADALIMUMAB
     Indication: HIDRADENITIS
     Dosage: 160 MG, QW2
     Route: 058
  3. ADALIMUMAB [Suspect]
     Active Substance: ADALIMUMAB
     Dosage: 40 MG, QW2
     Route: 058

REACTIONS (6)
  - Skin necrosis [Recovering/Resolving]
  - Pyoderma gangrenosum [Recovered/Resolved]
  - Skin plaque [Recovering/Resolving]
  - Paradoxical drug reaction [Recovered/Resolved]
  - Papule [Recovering/Resolving]
  - Skin ulcer [Recovering/Resolving]
